FAERS Safety Report 8007548 (Version 2)
Quarter: 2013Q1

REPORT INFORMATION
  Report Type: Spontaneous
  Country: US (occurrence: None)
  Receive Date: 20110609
  Receipt Date: 20130204
  Transmission Date: 20140127
  Serious: Yes (Death, Hospitalization)
  Sender: FDA-Public Use
  Company Number: TPA2011A02626

PATIENT
  Sex: Male

DRUGS (2)
  1. ULORIC [Suspect]
  2. ALLOPURINOL [Suspect]

REACTIONS (1)
  - Hepatic failure [None]
